FAERS Safety Report 6121480-X (Version None)
Quarter: 2009Q1

REPORT INFORMATION
  Report Type: 
  Country: None (occurrence: None)
  Receive Date: 20090313
  Receipt Date: 20090302
  Transmission Date: 20090719
  Serious: Yes (Hospitalization)
  Sender: FDA-Public Use
  Company Number: TCI2009A00370

PATIENT
  Age: 74 Year
  Sex: Male

DRUGS (3)
  1. ACTOS [Suspect]
     Indication: TYPE 2 DIABETES MELLITUS
     Dosage: 15 MG(15 MG, 1 D) ORAL
     Route: 048
     Dates: start: 20080324, end: 20080411
  2. ANGIOTENSIN II ANTAGONISTS [Concomitant]
  3. ANTITHROMBOTIC AGENTS [Concomitant]

REACTIONS (8)
  - ACUTE MYOCARDIAL INFARCTION [None]
  - ALANINE AMINOTRANSFERASE INCREASED [None]
  - ASPARTATE AMINOTRANSFERASE INCREASED [None]
  - BLOOD POTASSIUM INCREASED [None]
  - CEREBRAL INFARCTION [None]
  - DIALYSIS [None]
  - LABORATORY TEST ABNORMAL [None]
  - RENAL FAILURE [None]
